FAERS Safety Report 10337752 (Version 2)
Quarter: 2014Q4

REPORT INFORMATION
  Report Type: Report from Study
  Country: TR (occurrence: TR)
  Receive Date: 20140724
  Receipt Date: 20141027
  Transmission Date: 20150528
  Serious: Yes (Other)
  Sender: FDA-Public Use
  Company Number: TR-ROCHE-1438781

PATIENT
  Age: 26 Year
  Sex: Female
  Weight: 65 kg

DRUGS (5)
  1. METHOTREXATE [Concomitant]
     Active Substance: METHOTREXATE
     Dosage: PER WEEK
     Route: 065
     Dates: start: 201212, end: 201408
  2. FOLIC ACID. [Concomitant]
     Active Substance: FOLIC ACID
     Dosage: PER WEEK
     Route: 065
     Dates: start: 201212, end: 201408
  3. SULFASALAZINE DELAYED-RELEASE [Concomitant]
     Active Substance: SULFASALAZINE
     Dosage: 1000 MG*2
     Route: 065
     Dates: start: 201212, end: 201408
  4. TOCILIZUMAB [Suspect]
     Active Substance: TOCILIZUMAB
     Indication: RHEUMATOID ARTHRITIS
     Dosage: DATE OF LAST DOSE PRIOR TO SAE ON 07/JUL/2014
     Route: 042
     Dates: start: 20140205
  5. ISONIAZID. [Concomitant]
     Active Substance: ISONIAZID
     Route: 065
     Dates: start: 20140102

REACTIONS (1)
  - Skin mass [Not Recovered/Not Resolved]

NARRATIVE: CASE EVENT DATE: 20140708
